FAERS Safety Report 13719367 (Version 2)
Quarter: 2017Q3

REPORT INFORMATION
  Report Type: Spontaneous
  Country: DE (occurrence: DE)
  Receive Date: 20170705
  Receipt Date: 20170714
  Transmission Date: 20171127
  Serious: Yes (Death, Life-Threatening, Hospitalization, Other)
  Sender: FDA-Public Use
  Company Number: DE-PFIZER INC-2017288365

PATIENT
  Age: 16 Year
  Sex: Male

DRUGS (7)
  1. PIPERACILLIN [Concomitant]
     Active Substance: PIPERACILLIN
     Indication: ANTIBIOTIC THERAPY
     Dosage: UNK
     Route: 042
  2. NOREPINEPHRINE. [Concomitant]
     Active Substance: NOREPINEPHRINE
     Dosage: UNK
  3. COMBACTAM [Concomitant]
     Active Substance: SULBACTAM SODIUM
     Indication: ANTIBIOTIC THERAPY
     Dosage: UNK
     Route: 042
  4. FLUCLOXACILLIN [Concomitant]
     Active Substance: FLUCLOXACILLIN
     Indication: ANTIBIOTIC THERAPY
     Dosage: UNK
  5. MEROPENEM. [Concomitant]
     Active Substance: MEROPENEM
     Indication: ANTIBIOTIC THERAPY
     Dosage: UNK
  6. PROPOFOL. [Suspect]
     Active Substance: PROPOFOL
     Indication: SEDATION
     Dosage: UNK
  7. ADRENALINE [Concomitant]
     Active Substance: EPINEPHRINE
     Dosage: UNK

REACTIONS (1)
  - Propofol infusion syndrome [Fatal]
